FAERS Safety Report 6421444-2 (Version None)
Quarter: 2009Q4

REPORT INFORMATION
  Report Type: 
  Country: None (occurrence: None)
  Receive Date: 20091030
  Receipt Date: 20091023
  Transmission Date: 20100525
  Serious: Yes (Other)
  Sender: FDA-Public Use
  Company Number: ES-JNJFOC-20091007722

PATIENT
  Age: 70 Year
  Sex: Male

DRUGS (3)
  1. REMICADE [Suspect]
     Indication: CROHN'S DISEASE
     Route: 042
     Dates: start: 20060101, end: 20090601
  2. IMUREL [Suspect]
     Indication: CROHN'S DISEASE
  3. OPTOVITE B12 [Concomitant]
     Route: 050

REACTIONS (1)
  - LUNG NEOPLASM MALIGNANT [None]
